FAERS Safety Report 11509685 (Version 1)
Quarter: 2015Q3

REPORT INFORMATION
  Report Type: Spontaneous
  Country: US (occurrence: US)
  Receive Date: 20150915
  Receipt Date: 20150915
  Transmission Date: 20151125
  Serious: No
  Sender: FDA-Public Use
  Company Number: US-JNJFOC-20150701078

PATIENT
  Age: 64 Year
  Sex: Male
  Weight: 108.86 kg

DRUGS (1)
  1. TYLENOL EXTRA STRENGTH [Suspect]
     Active Substance: ACETAMINOPHEN
     Indication: PAIN
     Route: 048
     Dates: start: 20150629, end: 20150630

REACTIONS (3)
  - Incorrect dose administered [Unknown]
  - Product lot number issue [Unknown]
  - Product expiration date issue [Unknown]
